FAERS Safety Report 8450297-6 (Version None)
Quarter: 2012Q2

REPORT INFORMATION
  Report Type: 
  Country: None (occurrence: None)
  Receive Date: 20120620
  Receipt Date: 20120607
  Transmission Date: 20120825
  Serious: Yes (Disabling, Other)
  Sender: FDA-Public Use
  Company Number: US-PFIZER INC-US-WYE-H16798510

PATIENT
  Sex: Female
  Weight: 54.4 kg

DRUGS (4)
  1. EFFEXOR XR [Suspect]
     Indication: ANXIETY
     Dosage: A.M. 150MG, P.M. 75MG
     Dates: end: 20100801
  2. PREDNISONE TAB [Suspect]
     Indication: TEMPORAL ARTERITIS
     Dosage: 60 MG, 1X/DAY
     Dates: start: 20010101, end: 20020101
  3. EFFEXOR XR [Suspect]
     Indication: DEPRESSION
  4. SERAX [Concomitant]
     Dosage: UNK

REACTIONS (10)
  - WEIGHT INCREASED [None]
  - EYE PAIN [None]
  - BONE PAIN [None]
  - AMNESIA [None]
  - THROMBOSIS [None]
  - TEMPORAL ARTERITIS [None]
  - RED BLOOD CELL SEDIMENTATION RATE INCREASED [None]
  - BONE ATROPHY [None]
  - DIABETES MELLITUS [None]
  - BODY HEIGHT DECREASED [None]
